FAERS Safety Report 6579205-X (Version None)
Quarter: 2010Q1

REPORT INFORMATION
  Report Type: 
  Country: None (occurrence: None)
  Receive Date: 20100212
  Receipt Date: 20100203
  Transmission Date: 20100710
  Serious: Yes (Life-Threatening, Other)
  Sender: FDA-Public Use
  Company Number: BR-TYCO HEALTHCARE/MALLINCKRODT-T201000588

PATIENT
  Age: 25 Year
  Sex: Female

DRUGS (1)
  1. OPTIRAY 350 [Suspect]
     Indication: COMPUTERISED TOMOGRAM
     Dosage: 120 ML, SINGLE
     Route: 042
     Dates: start: 20090724, end: 20090724

REACTIONS (4)
  - DYSPNOEA [None]
  - HEADACHE [None]
  - LARYNGEAL OEDEMA [None]
  - ODYNOPHAGIA [None]
